FAERS Safety Report 4322098-1 (Version None)
Quarter: 2004Q1

REPORT INFORMATION
  Report Type: 
  Country: None (occurrence: None)
  Receive Date: 20040323
  Receipt Date: 20040310
  Transmission Date: 20041129
  Serious: Yes (Hospitalization, Disabling)
  Sender: FDA-Public Use
  Company Number: FR-GLAXOSMITHKLINE-B0326182A

PATIENT
  Age: 30 Year
  Sex: Male

DRUGS (1)
  1. IMIGRANE [Suspect]
     Indication: MIGRAINE
     Route: 045
     Dates: start: 20031111, end: 20031111

REACTIONS (4)
  - CONDITION AGGRAVATED [None]
  - ISCHAEMIC STROKE [None]
  - MIGRAINE [None]
  - WALLENBERG SYNDROME [None]
